FAERS Safety Report 6993528-1 (Version None)
Quarter: 2010Q3

REPORT INFORMATION
  Report Type: 
  Country: None (occurrence: None)
  Receive Date: 20100917
  Receipt Date: 20100525
  Transmission Date: 20110219
  Serious: Yes (Hospitalization)
  Sender: FDA-Public Use
  Company Number: US-ASTRAZENECA-2010SE24175

PATIENT
  Age: 27 Year
  Sex: Male
  Weight: 124.7 kg

DRUGS (4)
  1. SEROQUEL XR [Suspect]
     Route: 048
     Dates: start: 20100101, end: 20100518
  2. SEROQUEL XR [Suspect]
     Route: 048
     Dates: start: 20100518
  3. ZOLOFT [Concomitant]
  4. VISTARIL [Concomitant]

REACTIONS (1)
  - SUICIDE ATTEMPT [None]
